FAERS Safety Report 8709497 (Version 2)
Quarter: 2012Q4

REPORT INFORMATION
  Report Type: 
  Country: US (occurrence: US)
  Receive Date: 20120806
  Receipt Date: 20120830
  Transmission Date: 20130627
  Serious: Yes (Death, Hospitalization)
  Sender: FDA-Public Use
  Company Number: US-ASTRAZENECA-2012SE54345

PATIENT
  Age: 90 Year
  Sex: Female

DRUGS (3)
  1. SYMBICORT PMDI [Suspect]
     Dosage: UNKNOWN
     Route: 055
  2. NEXIUM [Suspect]
     Route: 048
  3. ACCOLATE [Suspect]
     Route: 048

REACTIONS (3)
  - Death [Fatal]
  - Cerebrovascular accident [Unknown]
  - Pneumonia [Unknown]
